FAERS Safety Report 9540471 (Version 4)
Quarter: 2013Q4

REPORT INFORMATION
  Report Type: Report from Study
  Country: MX (occurrence: MX)
  Receive Date: 20130920
  Receipt Date: 20131227
  Transmission Date: 20140711
  Serious: Yes (Death, Life-Threatening, Hospitalization)
  Sender: FDA-Public Use
  Company Number: MX-ABBVIE-12P-107-0980717-00

PATIENT
  Age: 55 Year
  Sex: Female
  Weight: 59 kg

DRUGS (9)
  1. HUMIRA [Suspect]
     Indication: RHEUMATOID ARTHRITIS
     Route: 058
     Dates: start: 20120327, end: 20120828
  2. METHOTREXATE [Concomitant]
     Indication: RHEUMATOID ARTHRITIS
     Dates: start: 20111010, end: 20120825
  3. SULINDAC [Concomitant]
     Indication: RHEUMATOID ARTHRITIS
     Dates: start: 20111110, end: 20120825
  4. PARACETAMOL [Concomitant]
     Indication: RHEUMATOID ARTHRITIS
     Dates: start: 20111110, end: 20120825
  5. PARACETAMOL [Concomitant]
     Dates: start: 20111110, end: 20120326
  6. OMEPRAZOL [Concomitant]
     Indication: GASTROOESOPHAGEAL REFLUX DISEASE
     Dates: start: 20091023, end: 20120912
  7. FOLIC ACID [Concomitant]
     Indication: ENZYME INHIBITION
     Dates: start: 20120327, end: 20120825
  8. FOLIC ACID [Concomitant]
     Indication: PROPHYLAXIS
  9. SULINDACO [Concomitant]
     Indication: RHEUMATOID ARTHRITIS
     Dates: start: 20111110, end: 20120326

REACTIONS (2)
  - Upper gastrointestinal haemorrhage [Fatal]
  - Hepatic cirrhosis [Fatal]
